FAERS Safety Report 6579609-5 (Version None)
Quarter: 2010Q1

REPORT INFORMATION
  Report Type: 
  Country: None (occurrence: None)
  Receive Date: 20100209
  Receipt Date: 20100209
  Transmission Date: 20100710
  Serious: Yes (Disabling)
  Sender: FDA-Public Use
  Company Number: None

PATIENT
  Age: 57 Year
  Sex: Female
  Weight: 58.0604 kg

DRUGS (3)
  1. AMOXICILLIN [Suspect]
     Indication: DENTAL IMPLANTATION
     Dosage: 500 MG 3 TIMES A DAY PO
     Route: 048
     Dates: start: 20100128, end: 20100202
  2. AMOXICILLIN [Suspect]
     Indication: POSTOPERATIVE CARE
     Dosage: 500 MG 3 TIMES A DAY PO
     Route: 048
     Dates: start: 20100128, end: 20100202
  3. AMOXICILLIN [Suspect]
     Indication: PROPHYLAXIS
     Dosage: 500 MG 3 TIMES A DAY PO
     Route: 048
     Dates: start: 20100128, end: 20100202

REACTIONS (5)
  - AGITATION [None]
  - DEPRESSION [None]
  - DISCOMFORT [None]
  - EMOTIONAL DISORDER [None]
  - IMPATIENCE [None]
